FAERS Safety Report 6470380-4 (Version None)
Quarter: 2009Q4

REPORT INFORMATION
  Report Type: 
  Country: None (occurrence: None)
  Receive Date: 20091203
  Receipt Date: 20091123
  Transmission Date: 20100525
  Serious: Yes (Other)
  Sender: FDA-Public Use
  Company Number: BR-PFIZER INC-2009287807

PATIENT
  Sex: Female
  Weight: 70 kg

DRUGS (2)
  1. DETRUSITOL LA [Suspect]
     Indication: BLADDER DISCOMFORT
     Dosage: 4 MG, 1X/DAY
     Route: 048
     Dates: start: 20090801, end: 20090901
  2. LIVIAL [Concomitant]
     Dosage: UNK
     Dates: start: 20060101

REACTIONS (4)
  - ABDOMINAL RIGIDITY [None]
  - CONSTIPATION [None]
  - DIVERTICULITIS [None]
  - URINARY RETENTION [None]
